FAERS Safety Report 12237354 (Version 1)
Quarter: 2016Q2

REPORT INFORMATION
  Report Type: Spontaneous
  Country: US (occurrence: None)
  Receive Date: 20160404
  Receipt Date: 20160404
  Transmission Date: 20160815
  Serious: No
  Sender: FDA-Public Use
  Company Number: None

PATIENT
  Age: 32 Year
  Sex: Male

DRUGS (1)
  1. STRIBILD [Suspect]
     Active Substance: COBICISTAT\ELVITEGRAVIR\EMTRICITABINE\TENOFOVIR DISOPROXIL FUMARATE
     Indication: BACILLARY ANGIOMATOSIS
     Route: 048
     Dates: start: 20151120

REACTIONS (5)
  - Rash [None]
  - Somnambulism [None]
  - Abnormal dreams [None]
  - Drug dose omission [None]
  - Abnormal sleep-related event [None]

NARRATIVE: CASE EVENT DATE: 20151201
